FAERS Safety Report 5575398-1 (Version None)
Quarter: 2007Q4

REPORT INFORMATION
  Report Type: 
  Country: None (occurrence: None)
  Receive Date: 20071227
  Receipt Date: 20071219
  Transmission Date: 20080405
  Serious: Yes (Disabling, Other)
  Sender: FDA-Public Use
  Company Number: GB-BOEHRINGER INGELHEIM PHARMACEUTICALS, INC.-2007-UK-03804UK

PATIENT
  Age: 80 Year
  Sex: Male

DRUGS (6)
  1. PRAMIPEXOLE DIHYDROCHLORIDE [Suspect]
     Indication: RESTLESS LEGS SYNDROME
     Dates: start: 20071016, end: 20071026
  2. WARFARIN SODIUM [Concomitant]
     Indication: ATRIAL FIBRILLATION
     Route: 048
     Dates: start: 20070606
  3. MAXIDEX [Concomitant]
     Indication: TRABECULECTOMY
     Dosage: REDUCING COURSE
     Route: 061
     Dates: start: 20070427, end: 20071010
  4. LUMIGAN [Concomitant]
     Indication: GLAUCOMA
     Route: 061
     Dates: start: 20050603
  5. TEOPTIC [Concomitant]
     Indication: GLAUCOMA
     Route: 061
     Dates: start: 20051007
  6. FYBOGEL [Concomitant]
     Indication: CONSTIPATION
     Route: 048

REACTIONS (3)
  - CATARACT [None]
  - VISUAL ACUITY REDUCED [None]
  - VISUAL FIELD DEFECT [None]
